FAERS Safety Report 9513185 (Version 2)
Quarter: 2013Q4

REPORT INFORMATION
  Report Type: Spontaneous
  Country: US (occurrence: US)
  Receive Date: 20130910
  Receipt Date: 20131014
  Transmission Date: 20140711
  Serious: Yes (Other)
  Sender: FDA-Public Use
  Company Number: US-PFIZER INC-2013258777

PATIENT
  Age: 80 Year
  Sex: Female
  Weight: 74.38 kg

DRUGS (4)
  1. LYRICA [Suspect]
     Indication: FIBROMYALGIA
     Dosage: 450 MG, UNK
     Dates: start: 20130905, end: 20130905
  2. LYRICA [Suspect]
     Indication: SYSTEMIC LUPUS ERYTHEMATOSUS
  3. WELLBUTRIN [Concomitant]
     Dosage: UNK
  4. TYLENOL [Concomitant]
     Indication: PAIN
     Dosage: UNK

REACTIONS (21)
  - Dyskinesia [Not Recovered/Not Resolved]
  - Off label use [Unknown]
  - Overdose [Unknown]
  - Blindness unilateral [Not Recovered/Not Resolved]
  - Feeling drunk [Unknown]
  - Visual acuity reduced [Unknown]
  - Visual field defect [Unknown]
  - Dysarthria [Unknown]
  - Fatigue [Unknown]
  - Muscle spasms [Unknown]
  - Headache [Unknown]
  - Gait disturbance [Unknown]
  - Bradyphrenia [Unknown]
  - Somnolence [Not Recovered/Not Resolved]
  - Fatigue [Not Recovered/Not Resolved]
  - Eye disorder [Not Recovered/Not Resolved]
  - Visual impairment [Not Recovered/Not Resolved]
  - Strabismus [Not Recovered/Not Resolved]
  - Impaired driving ability [Not Recovered/Not Resolved]
  - Balance disorder [Not Recovered/Not Resolved]
  - Tremor [Not Recovered/Not Resolved]
